FAERS Safety Report 9479088 (Version 2)
Quarter: 2013Q4

REPORT INFORMATION
  Report Type: Spontaneous
  Country: US (occurrence: US)
  Receive Date: 20130827
  Receipt Date: 20131011
  Transmission Date: 20140711
  Serious: Yes (Death)
  Sender: FDA-Public Use
  Company Number: US-LUNDBECK-DKLU1093143

PATIENT
  Age: 62 Year
  Sex: Female

DRUGS (4)
  1. SABRIL (FOR ORAL SOLUTION) [Suspect]
     Indication: STATUS EPILEPTICUS
     Route: 048
     Dates: start: 20130804
  2. KEPPRA [Concomitant]
     Indication: PRODUCT USED FOR UNKNOWN INDICATION
  3. VIMPAT [Concomitant]
     Indication: PRODUCT USED FOR UNKNOWN INDICATION
  4. DEPAKOTE [Concomitant]
     Indication: PRODUCT USED FOR UNKNOWN INDICATION

REACTIONS (3)
  - Brain injury [Fatal]
  - Cardiac arrest [Fatal]
  - Status epilepticus [Fatal]
